FAERS Safety Report 23522582 (Version 2)
Quarter: 2024Q1

REPORT INFORMATION
  Report Type: Spontaneous
  Country: US (occurrence: US)
  Receive Date: 20240214
  Receipt Date: 20240228
  Transmission Date: 20240409
  Serious: Yes (Death, Hospitalization, Other)
  Sender: FDA-Public Use
  Company Number: US-Axellia-005056

PATIENT
  Age: 68 Year
  Sex: Female
  Weight: 103.0 kg

DRUGS (14)
  1. VANCOMYCIN [Suspect]
     Active Substance: VANCOMYCIN
     Indication: Wound infection
     Dosage: 1 GRAM/VIAL (1 GRAM), 2G/500 ML X1 STAT, INFUSION PUMP 250 ML/HR, NORMAL SALINE
     Route: 042
     Dates: start: 20231218, end: 20231218
  2. CIPROFLOXACIN [Concomitant]
     Active Substance: CIPROFLOXACIN
     Indication: Wound infection
     Dosage: TWO DAYS PRIOR
     Route: 048
     Dates: start: 20231216
  3. ASCORBIC ACID [Concomitant]
     Active Substance: ASCORBIC ACID
     Dosage: 500 MG DAILY
  4. ASPIRIN [Concomitant]
     Active Substance: ASPIRIN
     Dosage: 81 MG EC DAILY
  5. ATORVASTATIN [Concomitant]
     Active Substance: ATORVASTATIN
     Dosage: 80 MG DAILY
  6. ALPHAGAN P [Concomitant]
     Active Substance: BRIMONIDINE TARTRATE
     Dosage: 0.2 %
  7. VITAMIN D3 [Concomitant]
     Active Substance: CHOLECALCIFEROL
     Dosage: 5000 UNITS DAILY
  8. VITAMIN B12 [Concomitant]
     Active Substance: CYANOCOBALAMIN
     Dosage: 1000 MCG DAILY
  9. FUROSEMIDE [Concomitant]
     Active Substance: FUROSEMIDE
  10. LATANOPROST [Concomitant]
     Active Substance: LATANOPROST
  11. MECLIZINE [Concomitant]
     Active Substance: MECLIZINE HYDROCHLORIDE
     Dosage: 25MG TID PRN
  12. TIMOLOL [Concomitant]
     Active Substance: TIMOLOL
     Dosage: 0.5% BID
  13. ZOSYN [Concomitant]
     Active Substance: PIPERACILLIN SODIUM\TAZOBACTAM SODIUM
     Dosage: 4.5 GM
     Route: 042
     Dates: start: 20231218, end: 20231218
  14. HYDROMORPHONE [Concomitant]
     Active Substance: HYDROMORPHONE
     Dosage: 0.5 MG
     Dates: start: 20231218

REACTIONS (1)
  - Cardiac arrest [Fatal]

NARRATIVE: CASE EVENT DATE: 20231218
